FAERS Safety Report 14744296 (Version 2)
Quarter: 2018Q2

REPORT INFORMATION
  Report Type: Spontaneous
  Country: US (occurrence: US)
  Receive Date: 20180411
  Receipt Date: 20180510
  Transmission Date: 20180711
  Serious: Yes (Other)
  Sender: FDA-Public Use
  Company Number: US-BRISTOL-MYERS SQUIBB COMPANY-BMS-2018-031807

PATIENT
  Sex: Female
  Weight: 99.7 kg

DRUGS (4)
  1. AZACTAM [Suspect]
     Active Substance: AZTREONAM
     Indication: PRODUCT USED FOR UNKNOWN INDICATION
     Dosage: UNK
     Route: 065
     Dates: start: 20180329
  2. AZACTAM [Suspect]
     Active Substance: AZTREONAM
     Indication: PRODUCT USED FOR UNKNOWN INDICATION
     Dosage: 2 G, BID
     Route: 042
  3. AZACTAM [Suspect]
     Active Substance: AZTREONAM
     Indication: DIVERTICULITIS
     Dosage: 1 G, TID
     Route: 042
     Dates: start: 20180220
  4. FLAGYL [Concomitant]
     Active Substance: METRONIDAZOLE\METRONIDAZOLE HYDROCHLORIDE
     Indication: DIVERTICULITIS
     Route: 065

REACTIONS (3)
  - Diverticulitis [Recovering/Resolving]
  - Nasal ulcer [Unknown]
  - Epistaxis [Recovered/Resolved]
